FAERS Safety Report 9194241 (Version 1)
Quarter: 2013Q1

REPORT INFORMATION
  Report Type: Spontaneous
  Country: GB (occurrence: GB)
  Receive Date: 20130327
  Receipt Date: 20130327
  Transmission Date: 20140127
  Serious: Yes (Other)
  Sender: FDA-Public Use
  Company Number: PHHY2013GB027732

PATIENT
  Age: 74 Year
  Sex: Male
  Weight: 101 kg

DRUGS (6)
  1. BISOPROLOL [Suspect]
     Dates: start: 20130308
  2. DICLOFENAC SODIUM [Concomitant]
     Dates: start: 20121031
  3. RAMIPRIL [Concomitant]
     Dates: start: 20121031
  4. AMOXICILLIN [Concomitant]
     Dates: start: 20130128, end: 20130204
  5. ASPIRIN [Concomitant]
     Dates: start: 20130306
  6. SALBUTAMOL [Concomitant]
     Dates: start: 20130308

REACTIONS (2)
  - Wheezing [Recovering/Resolving]
  - Dyspnoea [Unknown]
